FAERS Safety Report 8013003-5 (Version None)
Quarter: 2011Q4

REPORT INFORMATION
  Report Type: 
  Country: None (occurrence: None)
  Receive Date: 20111229
  Receipt Date: 20111219
  Transmission Date: 20120403
  Serious: Yes (Death)
  Sender: FDA-Public Use
  Company Number: US-PFIZER INC-2011310087

PATIENT
  Age: 28 Year
  Sex: Female

DRUGS (2)
  1. VALPROIC ACID [Suspect]
     Dosage: UNK
     Route: 048
  2. ZIPRASIDONE HCL [Suspect]
     Dosage: UNK
     Route: 048

REACTIONS (18)
  - RESPIRATORY ARREST [None]
  - PCO2 DECREASED [None]
  - BLOOD POTASSIUM DECREASED [None]
  - TOXICITY TO VARIOUS AGENTS [None]
  - BLOOD BICARBONATE DECREASED [None]
  - HYPOTENSION [None]
  - COMPLETED SUICIDE [None]
  - PUPILLARY REFLEX IMPAIRED [None]
  - CARDIAC ARREST [None]
  - DEPRESSED LEVEL OF CONSCIOUSNESS [None]
  - BLOOD CHLORIDE INCREASED [None]
  - PO2 INCREASED [None]
  - AMMONIA INCREASED [None]
  - BLOOD SODIUM INCREASED [None]
  - BLOOD CREATININE INCREASED [None]
  - BLOOD PH DECREASED [None]
  - MULTIPLE DRUG OVERDOSE INTENTIONAL [None]
  - DRUG ABUSE [None]
